FAERS Safety Report 9178334 (Version 1)
Quarter: 2013Q1

REPORT INFORMATION
  Report Type: Spontaneous
  Country: BR (occurrence: BR)
  Receive Date: 20130321
  Receipt Date: 20130321
  Transmission Date: 20140127
  Serious: Yes (Other)
  Sender: FDA-Public Use
  Company Number: BR-BRISTOL-MYERS SQUIBB COMPANY-17483538

PATIENT
  Sex: Male

DRUGS (1)
  1. APROZIDE [Suspect]
     Dosage: APROZIDE 150/12.5MG TABS

REACTIONS (1)
  - Labyrinthitis [Unknown]
